FAERS Safety Report 11114714 (Version 1)
Quarter: 2015Q2

REPORT INFORMATION
  Report Type: Spontaneous
  Country: IN (occurrence: None)
  Receive Date: 20150513
  Receipt Date: 20150513
  Transmission Date: 20150821
  Serious: Yes (Hospitalization, Other)
  Sender: FDA-Public Use
  Company Number: UCM201505-000329

PATIENT
  Age: 31 Year
  Sex: Male

DRUGS (4)
  1. OLANZAPINE. [Concomitant]
     Active Substance: OLANZAPINE
  2. DIVALPROEX SODIUM (DIVALPROEX SODIUM) (DIVALPROEX SODIUM) [Suspect]
     Active Substance: DIVALPROEX SODIUM
     Indication: MANIA
  3. ARIPIPRAZOLE. [Concomitant]
     Active Substance: ARIPIPRAZOLE
  4. TOPIRAMATE (TOPIRAMATE) (TOPIRAMATE) [Suspect]
     Active Substance: TOPIRAMATE
     Indication: VASCULAR HEADACHE

REACTIONS (16)
  - Off label use [None]
  - Vascular headache [None]
  - Gait disturbance [None]
  - Delirium [None]
  - Nausea [None]
  - Disorientation [None]
  - Decreased activity [None]
  - Hyperammonaemia [None]
  - Incoherent [None]
  - Psychomotor hyperactivity [None]
  - Medication error [None]
  - Confusional state [None]
  - Agitation [None]
  - Vomiting [None]
  - Condition aggravated [None]
  - Sleep phase rhythm disturbance [None]
